FAERS Safety Report 7668419-3 (Version None)
Quarter: 2011Q3

REPORT INFORMATION
  Report Type: 
  Country: None (occurrence: None)
  Receive Date: 20110808
  Receipt Date: 20110725
  Transmission Date: 20111222
  Serious: Yes (Hospitalization)
  Sender: FDA-Public Use
  Company Number: US-ELI_LILLY_AND_COMPANY-US201104006975

PATIENT
  Sex: Female

DRUGS (22)
  1. XANAX [Concomitant]
  2. PREDNISONE [Concomitant]
  3. RAMIPRIL [Concomitant]
  4. METOPROLOL TARTRATE [Concomitant]
  5. TOPROL-XL [Concomitant]
  6. FORTEO [Suspect]
     Dosage: 20 UG, QD
  7. ENALAPRIL MALEATE [Concomitant]
  8. SPIRIVA [Concomitant]
  9. SINGULAIR [Concomitant]
  10. GLIPIZIDE [Concomitant]
  11. FORTEO [Suspect]
     Dosage: 20 UG, QD
  12. AVELOX [Concomitant]
  13. ADVAIR DISKUS 100/50 [Concomitant]
  14. FORTEO [Suspect]
     Indication: OSTEOPOROSIS
     Dosage: 20 UG, QD
     Dates: start: 20101101
  15. FLONASE [Concomitant]
  16. CLARITIN [Concomitant]
  17. ANAPRIL [Concomitant]
  18. INSULIN [Concomitant]
  19. FORTEO [Suspect]
     Dosage: 20 UG, QD
  20. BYETTA [Concomitant]
  21. METFORMIN HCL [Concomitant]
  22. PRAVASTATIN [Concomitant]

REACTIONS (9)
  - DYSPNOEA [None]
  - BLOOD GLUCOSE INCREASED [None]
  - BLOOD GLUCOSE DECREASED [None]
  - HYPOAESTHESIA [None]
  - CHRONIC OBSTRUCTIVE PULMONARY DISEASE [None]
  - MEMORY IMPAIRMENT [None]
  - INJECTION SITE PAIN [None]
  - NERVOUS SYSTEM DISORDER [None]
  - DIABETES MELLITUS [None]
